FAERS Safety Report 9322317 (Version 1)
Quarter: 2013Q2

REPORT INFORMATION
  Report Type: Spontaneous
  Country: BR (occurrence: None)
  Receive Date: 20130529
  Receipt Date: 20130529
  Transmission Date: 20140414
  Serious: Yes (Hospitalization, Other)
  Sender: FDA-Public Use
  Company Number: DSU-2013-03403

PATIENT
  Age: 54 Year
  Sex: Female
  Weight: 144 kg

DRUGS (5)
  1. OLMETEC HCT (HYDROCHLOROTHIAZIDE, OLMESARTAN MEDOXOMIL) (TABLET) (HYDROCHLOROTHIAZIDE, OLMESARTAN MEDOXOMIL) [Suspect]
     Indication: HYPERTENSION
     Route: 048
     Dates: start: 20111107, end: 201304
  2. NORVASC [Suspect]
     Indication: HYPERTENSION
     Route: 048
     Dates: start: 20111107
  3. NORIPURUM (FERRIC HYDROXIDE POLYMALTOSE COMPLE) (FERRIC HYDROXIDE POLYMALTOSE COMPLEX) (FERRIC HYDROXYDE POLYMALTOSE COMPLEX) [Concomitant]
  4. OMEPRAZOL (OMEPRAZOLE) [Concomitant]
  5. PURAN T4 (LEVOTHYROXINE SODIUM) [Concomitant]

REACTIONS (4)
  - Accident [None]
  - Hypertension [None]
  - Laceration [None]
  - Inflammation of wound [None]
